FAERS Safety Report 21270336 (Version 3)
Quarter: 2022Q3

REPORT INFORMATION
  Report Type: Report from Study
  Country: CN (occurrence: CN)
  Receive Date: 20220830
  Receipt Date: 20220928
  Transmission Date: 20221027
  Serious: Yes (Other)
  Sender: FDA-Public Use
  Company Number: CN-BRISTOL-MYERS SQUIBB COMPANY-2022-095833

PATIENT
  Age: 69 Year
  Sex: Male

DRUGS (2)
  1. OPDIVO [Suspect]
     Active Substance: NIVOLUMAB
     Indication: Gastric cancer
     Route: 041
     Dates: start: 20211014
  2. OPDIVO [Suspect]
     Active Substance: NIVOLUMAB
     Route: 041
     Dates: start: 20220115

REACTIONS (7)
  - Haemoglobin decreased [Unknown]
  - Choking sensation [Unknown]
  - Off label use [Unknown]
  - Abdominal pain upper [Unknown]
  - Abdominal distension [Unknown]
  - Decreased appetite [Unknown]
  - Vomiting [Unknown]
